FAERS Safety Report 4357913-9 (Version None)
Quarter: 2004Q2

REPORT INFORMATION
  Report Type: 
  Country: None (occurrence: None)
  Receive Date: 20040514
  Receipt Date: 20030130
  Transmission Date: 20050107
  Serious: Yes (Other)
  Sender: FDA-Public Use
  Company Number: PHEH2003US01123

PATIENT
  Age: 80 Year
  Sex: Female

DRUGS (1)
  1. AREDIA [Suspect]
     Indication: SARCOMA UTERUS

REACTIONS (1)
  - OSTEONECROSIS [None]
